FAERS Safety Report 6535907-2 (Version None)
Quarter: 2010Q1

REPORT INFORMATION
  Report Type: 
  Country: None (occurrence: None)
  Receive Date: 20100113
  Receipt Date: 20100106
  Transmission Date: 20100710
  Serious: Yes (Hospitalization, Congenital Anomaly, Other)
  Sender: FDA-Public Use
  Company Number: GB-TEVA-217782ISR

PATIENT
  Age: 1 Hour
  Sex: Male

DRUGS (3)
  1. LACTULOSE [Suspect]
     Route: 064
  2. ARIPIPRAZOLE [Suspect]
     Route: 064
  3. TRIFLUOPERAZINE [Suspect]
     Route: 064

REACTIONS (2)
  - NEONATAL DISORDER [None]
  - TRACHEO-OESOPHAGEAL FISTULA [None]
